FAERS Safety Report 23902808 (Version 2)
Quarter: 2024Q2

REPORT INFORMATION
  Report Type: Spontaneous
  Country: GR (occurrence: GR)
  Receive Date: 20240527
  Receipt Date: 20240529
  Transmission Date: 20240716
  Serious: Yes (Life-Threatening, Hospitalization, Other)
  Sender: FDA-Public Use
  Company Number: None

PATIENT
  Age: 21 Year
  Sex: Male

DRUGS (1)
  1. FUROSEMIDE [Suspect]
     Active Substance: FUROSEMIDE
     Indication: Pulmonary congestion
     Dosage: UNK
     Route: 065

REACTIONS (3)
  - Ventricular tachycardia [Recovered/Resolved]
  - Hypokalaemia [Recovered/Resolved]
  - Off label use [Unknown]
